FAERS Safety Report 19479687 (Version 1)
Quarter: 2021Q2

REPORT INFORMATION
  Report Type: Spontaneous
  Country: US (occurrence: US)
  Receive Date: 20210630
  Receipt Date: 20210630
  Transmission Date: 20210717
  Serious: Yes (Other)
  Sender: FDA-Public Use
  Company Number: US-MYOVANT SCIENCES IRELAND LIMITED-2021MYSCI0400095

PATIENT
  Age: 67 Year
  Sex: Male

DRUGS (1)
  1. ORGOVYX [Suspect]
     Active Substance: RELUGOLIX
     Indication: PRODUCT USED FOR UNKNOWN INDICATION
     Dosage: 120 MILLIGRAM, QD
     Route: 048
     Dates: start: 20210225

REACTIONS (5)
  - Hot flush [Not Recovered/Not Resolved]
  - Arterial therapeutic procedure [Recovered/Resolved]
  - Pollakiuria [Unknown]
  - Weight increased [Not Recovered/Not Resolved]
  - Headache [Unknown]

NARRATIVE: CASE EVENT DATE: 20210514
